FAERS Safety Report 17884948 (Version 2)
Quarter: 2020Q3

REPORT INFORMATION
  Report Type: Spontaneous
  Country: ES (occurrence: ES)
  Receive Date: 20200611
  Receipt Date: 20200701
  Transmission Date: 20201103
  Serious: Yes (Life-Threatening)
  Sender: FDA-Public Use
  Company Number: ES-MYLANLABS-2020M1056438

PATIENT
  Age: 64 Year
  Sex: Male

DRUGS (10)
  1. MYCOPHENOLATE MOFETIL. [Interacting]
     Active Substance: MYCOPHENOLATE MOFETIL
     Indication: HEART TRANSPLANT
     Dosage: 500 MILLIGRAM, BID
     Route: 048
     Dates: start: 20170419
  2. FOLIC ACID. [Concomitant]
     Active Substance: FOLIC ACID
     Indication: HEART TRANSPLANT
     Dosage: 5 MILLIGRAM, QD
     Route: 048
     Dates: start: 20170419
  3. PICATO [Interacting]
     Active Substance: INGENOL MEBUTATE
     Dosage: UNK
     Route: 061
     Dates: start: 20190403, end: 20190405
  4. OMEPRAZOL                          /00661201/ [Concomitant]
     Active Substance: OMEPRAZOLE
     Dosage: 20 MILLIGRAM, QD
     Route: 048
     Dates: start: 20170419
  5. PARACETAMOL [Concomitant]
     Active Substance: ACETAMINOPHEN
     Dosage: 1000 MILLIGRAM, Q8H
     Route: 048
     Dates: start: 20170419
  6. PREDNISONE. [Suspect]
     Active Substance: PREDNISONE
     Indication: HEART TRANSPLANT
     Dosage: 2.5 MILLIGRAM, QD
     Route: 048
     Dates: start: 20170419
  7. PICATO [Interacting]
     Active Substance: INGENOL MEBUTATE
     Indication: ACTINIC KERATOSIS
     Dosage: UNK
     Route: 061
     Dates: start: 20181231, end: 20190102
  8. PRAVASTATINA                       /00880401/ [Concomitant]
     Indication: DYSLIPIDAEMIA
     Dosage: 20 MILLIGRAM, QD
     Route: 048
     Dates: start: 20170419
  9. MUPIROCINA                         /00753901/ [Interacting]
     Active Substance: MUPIROCIN
     Indication: ACTINIC KERATOSIS
     Dosage: UNK
     Route: 061
     Dates: start: 20181231
  10. TACROLIMUS. [Interacting]
     Active Substance: TACROLIMUS
     Indication: HEART TRANSPLANT
     Dosage: 2 MILLIGRAM, QD
     Route: 048
     Dates: start: 20170419

REACTIONS (2)
  - Squamous cell carcinoma of skin [Not Recovered/Not Resolved]
  - Drug interaction [Unknown]

NARRATIVE: CASE EVENT DATE: 201906
